FAERS Safety Report 19491046 (Version 3)
Quarter: 2021Q3

REPORT INFORMATION
  Report Type: Spontaneous
  Country: US (occurrence: US)
  Receive Date: 20210705
  Receipt Date: 20210917
  Transmission Date: 20211014
  Serious: No
  Sender: FDA-Public Use
  Company Number: US-KARYOPHARM-2021KPT000753

PATIENT

DRUGS (24)
  1. HYDROXYZINE [Concomitant]
     Active Substance: HYDROXYZINE HYDROCHLORIDE
  2. ROLAPITANT [Concomitant]
     Active Substance: ROLAPITANT
  3. KLONOPIN [Concomitant]
     Active Substance: CLONAZEPAM
  4. DEXAMETHASONE. [Concomitant]
     Active Substance: DEXAMETHASONE
     Dosage: UNK
  5. XPOVIO [Suspect]
     Active Substance: SELINEXOR
     Indication: PLASMA CELL MYELOMA
     Dosage: 60 MG, WEEKLY
     Route: 048
     Dates: end: 2021
  6. NORVASC [Concomitant]
     Active Substance: AMLODIPINE BESYLATE
  7. LIDOCAINE PRILOCAINE BIOGARAN [Concomitant]
  8. ATIVAN [Concomitant]
     Active Substance: LORAZEPAM
  9. METHADONE [Concomitant]
     Active Substance: METHADONE HYDROCHLORIDE
  10. RENVELA [Concomitant]
     Active Substance: SEVELAMER CARBONATE
  11. METOPROLOL TARTRATE. [Concomitant]
     Active Substance: METOPROLOL TARTRATE
  12. OLANZAPINE. [Concomitant]
     Active Substance: OLANZAPINE
  13. ZOFRAN [Concomitant]
     Active Substance: ONDANSETRON HYDROCHLORIDE
  14. ROCALTROL [Concomitant]
     Active Substance: CALCITRIOL
  15. MEPRON [Concomitant]
     Active Substance: ATOVAQUONE
  16. POMALYST [Concomitant]
     Active Substance: POMALIDOMIDE
  17. DILAUDID [Concomitant]
     Active Substance: HYDROMORPHONE HYDROCHLORIDE
  18. SODIUM POLYSTYRENE SULFONATE. [Concomitant]
     Active Substance: SODIUM POLYSTYRENE SULFONATE
  19. ZOVIRAX [Concomitant]
     Active Substance: ACYCLOVIR
     Dosage: UNK
  20. METOCLOPRAMIDE. [Concomitant]
     Active Substance: METOCLOPRAMIDE
  21. METOPROLOL SUCCINATE. [Concomitant]
     Active Substance: METOPROLOL SUCCINATE
  22. MIRTAZAPINE. [Concomitant]
     Active Substance: MIRTAZAPINE
  23. CIALIS [Concomitant]
     Active Substance: TADALAFIL
  24. ALPHA LIPOIC ACID [Concomitant]
     Active Substance: .ALPHA.-LIPOIC ACID

REACTIONS (2)
  - Loss of therapeutic response [Unknown]
  - Nausea [Not Recovered/Not Resolved]

NARRATIVE: CASE EVENT DATE: 202106
